FAERS Safety Report 15113284 (Version 1)
Quarter: 2018Q3

REPORT INFORMATION
  Report Type: Spontaneous
  Country: FR (occurrence: FR)
  Receive Date: 20180706
  Receipt Date: 20180706
  Transmission Date: 20181010
  Serious: Yes (Hospitalization, Other)
  Sender: FDA-Public Use
  Company Number: FR-BRISTOL-MYERS SQUIBB COMPANY-BMS-2018-060825

PATIENT
  Age: 66 Year
  Sex: Female
  Weight: 43 kg

DRUGS (1)
  1. OPDIVO [Suspect]
     Active Substance: NIVOLUMAB
     Indication: METASTATIC BRONCHIAL CARCINOMA
     Dosage: 3 MG/KG, Q2WK
     Route: 042
     Dates: start: 201607, end: 20180410

REACTIONS (2)
  - Autoimmune nephritis [Recovering/Resolving]
  - Acute kidney injury [Recovering/Resolving]

NARRATIVE: CASE EVENT DATE: 20180414
